FAERS Safety Report 10391946 (Version 1)
Quarter: 2014Q3

REPORT INFORMATION
  Report Type: Spontaneous
  Country: CN (occurrence: CN)
  Receive Date: 20140819
  Receipt Date: 20140819
  Transmission Date: 20150326
  Serious: Yes (Death, Other)
  Sender: FDA-Public Use
  Company Number: PHHY2014CN101451

PATIENT
  Age: 21 Year
  Sex: Male

DRUGS (6)
  1. GRANULOCYTE COLONY STIMULATING FACTOR [Concomitant]
     Active Substance: GRANULOCYTE COLONY-STIMULATING FACTOR NOS
  2. CYCLOPHOSPHAMIDE. [Concomitant]
     Active Substance: CYCLOPHOSPHAMIDE
     Dosage: 50 MG/KG, PER DAY
  3. CICLOSPORIN [Suspect]
     Active Substance: CYCLOSPORINE
     Indication: PROPHYLAXIS AGAINST GRAFT VERSUS HOST DISEASE
     Dosage: 45 MG, PER DAY
  4. ANTITHYMOCYTE IMMUNOGLOBULIN [Concomitant]
     Active Substance: THYMOCYTE IMMUNE GLOBULIN NOS
     Dosage: 25 MG/KG, PER DAY
  5. METHOTREXATE [Suspect]
     Active Substance: METHOTREXATE
     Indication: PROPHYLAXIS AGAINST GRAFT VERSUS HOST DISEASE
     Dosage: 19 MG, PER DAY
  6. FLUDARABINE [Concomitant]
     Active Substance: FLUDARABINE PHOSPHATE
     Dosage: 30 MG/M2, PER DAY

REACTIONS (22)
  - Myalgia [Unknown]
  - Vomiting [Unknown]
  - Renal failure [Unknown]
  - Condition aggravated [Unknown]
  - Fusarium infection [Unknown]
  - Skin mass [Unknown]
  - Multi-organ failure [Fatal]
  - Scab [Unknown]
  - Vision blurred [Unknown]
  - Vitreous opacities [Unknown]
  - Optic ischaemic neuropathy [Unknown]
  - Scrotal pain [Unknown]
  - Retinal haemorrhage [Unknown]
  - Skin lesion [Unknown]
  - Blindness [Unknown]
  - Irritability [Unknown]
  - Rash [Unknown]
  - Headache [Unknown]
  - Pyrexia [Unknown]
  - Skin disorder [Unknown]
  - Visual acuity reduced [Unknown]
  - Nausea [Unknown]
